FAERS Safety Report 16656366 (Version 1)
Quarter: 2019Q3

REPORT INFORMATION
  Report Type: Report from Study
  Country: CN (occurrence: CN)
  Receive Date: 20190801
  Receipt Date: 20190801
  Transmission Date: 20191004
  Serious: Yes (Other)
  Sender: FDA-Public Use
  Company Number: CN-PFIZER INC-2018231923

PATIENT
  Age: 58 Year
  Sex: Male
  Weight: 82 kg

DRUGS (4)
  1. CALCIUM CARBONATE D3 [Concomitant]
  2. CRIZOTINIB [Suspect]
     Active Substance: CRIZOTINIB
     Indication: NON-SMALL CELL LUNG CANCER
     Dosage: 250 MG, 2X/DAY
     Route: 048
     Dates: start: 20180211
  3. BICYCLOL [Concomitant]
     Active Substance: BICYCLOL
     Dosage: 50 MG, TID
  4. DIAMMONIUM GLYCYRRHIZINATE [Concomitant]
     Active Substance: HERBALS\DIAMMONIUM GLYCYRRHIZINATE
     Dosage: 150 MG, TID
     Route: 048

REACTIONS (2)
  - Atrioventricular block first degree [Recovered/Resolved]
  - Defect conduction intraventricular [Recovered/Resolved]

NARRATIVE: CASE EVENT DATE: 20180529
